FAERS Safety Report 9786499 (Version 7)
Quarter: 2015Q4

REPORT INFORMATION
  Report Type: Spontaneous
  Country: US (occurrence: US)
  Receive Date: 20131227
  Receipt Date: 20151120
  Transmission Date: 20160305
  Serious: Yes (Hospitalization, Other)
  Sender: FDA-Public Use
  Company Number: US-009507513-1312USA009131

PATIENT
  Sex: Female
  Weight: 70.75 kg

DRUGS (10)
  1. XANTHOPHYLL [Concomitant]
     Dosage: 20 MG, QD
     Route: 065
     Dates: start: 2004
  2. ZOMETA [Suspect]
     Active Substance: ZOLEDRONIC ACID
     Indication: OSTEOPOROSIS
     Dosage: 4 MG, ONCE A YEAR
     Route: 042
     Dates: start: 2009, end: 2011
  3. IRON (UNSPECIFIED) [Concomitant]
     Active Substance: IRON
     Dosage: 55 MG, QD
     Route: 065
     Dates: start: 2004
  4. VITAMINS (UNSPECIFIED) [Concomitant]
     Active Substance: VITAMINS
     Dosage: 1 DF, QD
     Route: 065
     Dates: start: 2004
  5. CHOLECALCIFEROL [Concomitant]
     Active Substance: CHOLECALCIFEROL
     Dosage: 5000 IU, QD
     Route: 065
     Dates: start: 1994
  6. FOSAMAX PLUS D [Suspect]
     Active Substance: ALENDRONATE SODIUM\CHOLECALCIFEROL
     Dosage: 70 MG/2800 MG, QW
     Route: 048
     Dates: end: 20081031
  7. FOSAMAX [Suspect]
     Active Substance: ALENDRONATE SODIUM
     Indication: OSTEOPOROSIS
     Dosage: 70 MG, QW
     Route: 048
     Dates: start: 20070316, end: 20070416
  8. ALENDRONATE SODIUM. [Suspect]
     Active Substance: ALENDRONATE SODIUM
     Indication: OSTEOPOROSIS
     Dosage: 70 MG, QW
     Route: 048
     Dates: start: 20080527, end: 20090330
  9. ASPIRIN. [Concomitant]
     Active Substance: ASPIRIN
     Dosage: 31 MG, QD
     Route: 065
     Dates: start: 1993
  10. ASCORBIC ACID. [Concomitant]
     Active Substance: ASCORBIC ACID
     Dosage: 500 MG, QD
     Route: 065
     Dates: start: 2004

REACTIONS (24)
  - Femur fracture [Unknown]
  - Upper limb fracture [Unknown]
  - Fall [Unknown]
  - Femur fracture [Unknown]
  - Anaemia postoperative [Recovering/Resolving]
  - Metastases to bone [Unknown]
  - Rib fracture [Unknown]
  - Hyperlipidaemia [Unknown]
  - Osteoarthritis [Unknown]
  - Constipation [Recovering/Resolving]
  - Hypothyroidism [Unknown]
  - Arteriosclerosis coronary artery [Unknown]
  - Stress cardiomyopathy [Recovered/Resolved]
  - Rib fracture [Unknown]
  - Breast cancer female [Unknown]
  - Anaemia postoperative [Unknown]
  - Urge incontinence [Unknown]
  - Clavicle fracture [Recovered/Resolved]
  - Nasopharyngitis [Unknown]
  - Cataract [Unknown]
  - Femur fracture [Unknown]
  - Osteoporosis [Unknown]
  - Chronic obstructive pulmonary disease [Not Recovered/Not Resolved]
  - Aortic valve sclerosis [Unknown]

NARRATIVE: CASE EVENT DATE: 20070605
